FAERS Safety Report 9108356 (Version 1)
Quarter: 2013Q1

REPORT INFORMATION
  Report Type: Spontaneous
  Country: JP (occurrence: JP)
  Receive Date: 20130222
  Receipt Date: 20130222
  Transmission Date: 20140127
  Serious: Yes (Other)
  Sender: FDA-Public Use
  Company Number: PHHY2013JP017532

PATIENT
  Sex: Female

DRUGS (4)
  1. EXFORGE [Suspect]
     Dosage: 1 DF, DAILY
     Route: 048
  2. EXFORGE [Suspect]
     Dosage: 0.5 DF, DAILY IN SUMMER
     Route: 048
  3. EXFORGE [Suspect]
     Dosage: 1 DF, DAILY IN WINTER OR SEASON CHANGE
     Route: 048
  4. ANTACIDS [Concomitant]
     Dosage: UNK UKN, UNK
     Route: 048

REACTIONS (2)
  - Blepharospasm [Recovered/Resolved]
  - Heart rate decreased [Unknown]
